FAERS Safety Report 8385189-4 (Version None)
Quarter: 2012Q2

REPORT INFORMATION
  Report Type: 
  Country: None (occurrence: None)
  Receive Date: 20120525
  Receipt Date: 20120515
  Transmission Date: 20120825
  Serious: Yes (Hospitalization, Other)
  Sender: FDA-Public Use
  Company Number: DE-BIOGENIDEC-2010BI032501

PATIENT
  Age: 38 Year
  Sex: Female

DRUGS (4)
  1. MODAFINIL [Concomitant]
     Indication: AFFECTIVE DISORDER
     Dates: start: 20100401
  2. MOVIPREP [Concomitant]
     Indication: CONSTIPATION
  3. VENLAFAXINE [Concomitant]
     Indication: AFFECTIVE DISORDER
     Dates: start: 20100401
  4. TYSABRI [Suspect]
     Indication: RELAPSING-REMITTING MULTIPLE SCLEROSIS
     Route: 042
     Dates: start: 20080710, end: 20100827

REACTIONS (2)
  - PROGRESSIVE MULTIFOCAL LEUKOENCEPHALOPATHY [None]
  - IMMUNE RECONSTITUTION SYNDROME [None]
